FAERS Safety Report 9557279 (Version 1)
Quarter: 2013Q3

REPORT INFORMATION
  Report Type: Spontaneous
  Country: DE (occurrence: None)
  Receive Date: 20130924
  Receipt Date: 20130924
  Transmission Date: 20140515
  Serious: Yes (Hospitalization)
  Sender: FDA-Public Use
  Company Number: SYM-2013-07692

PATIENT
  Age: 65 Year
  Sex: Female
  Weight: 50.5 kg

DRUGS (1)
  1. ZYCLARA [Suspect]
     Indication: PRODUCT USED FOR UNKNOWN INDICATION
     Dates: start: 201306, end: 201306

REACTIONS (5)
  - Fatigue [None]
  - Headache [None]
  - Dizziness [None]
  - Blood urine present [None]
  - Monoclonal gammopathy [None]
